FAERS Safety Report 10237162 (Version 1)
Quarter: 2014Q2

REPORT INFORMATION
  Report Type: Spontaneous
  Country: SE (occurrence: SE)
  Receive Date: 20140613
  Receipt Date: 20140613
  Transmission Date: 20141212
  Serious: Yes (Life-Threatening, Hospitalization)
  Sender: FDA-Public Use
  Company Number: SE-ASTRAZENECA-2014SE41113

PATIENT
  Age: 68 Year
  Sex: Female

DRUGS (1)
  1. ZOMIG NASAL [Suspect]
     Indication: MIGRAINE
     Dosage: HIGH DOSE
     Route: 045
     Dates: end: 20140322

REACTIONS (5)
  - Lung disorder [Recovered/Resolved with Sequelae]
  - Cough [None]
  - Dyspnoea [None]
  - Hypoxia [None]
  - Bacterial test positive [None]
